FAERS Safety Report 15879136 (Version 1)
Quarter: 2019Q1

REPORT INFORMATION
  Report Type: Spontaneous
  Country: US (occurrence: US)
  Receive Date: 20190104
  Receipt Date: 20190104
  Transmission Date: 20190417
  Serious: Yes (Life-Threatening, Hospitalization)
  Sender: FDA-Public Use
  Company Number: None

PATIENT
  Age: 37 Year
  Sex: Female
  Weight: 67.95 kg

DRUGS (5)
  1. LEVORPHANOL [Suspect]
     Active Substance: LEVORPHANOL
     Indication: BACK PAIN
     Route: 048
     Dates: start: 20190103, end: 20190104
  2. ABILIFY [Concomitant]
     Active Substance: ARIPIPRAZOLE
  3. ZOHYDRO [Suspect]
     Active Substance: HYDROCODONE BITARTRATE
  4. XTAMPZA [Suspect]
     Active Substance: OXYCODONE
  5. PAXIL [Concomitant]
     Active Substance: PAROXETINE HYDROCHLORIDE

REACTIONS (7)
  - Feeling abnormal [None]
  - Vomiting projectile [None]
  - Rash generalised [None]
  - Throat irritation [None]
  - Dizziness [None]
  - Dysphagia [None]
  - Sensation of foreign body [None]

NARRATIVE: CASE EVENT DATE: 20190103
